FAERS Safety Report 8990964 (Version 1)
Quarter: 2012Q4

REPORT INFORMATION
  Report Type: Spontaneous
  Country: TR (occurrence: None)
  Receive Date: 20121220
  Receipt Date: 20121220
  Transmission Date: 20130627
  Serious: Yes (Other)
  Sender: FDA-Public Use
  Company Number: INT_00166_2012

PATIENT
  Age: 7 Year
  Sex: Female
  Weight: 15 kg

DRUGS (1)
  1. CEFEPIME [Suspect]
     Indication: PRODUCT USED FOR UNKNOWN INDICATION
     Route: 042

REACTIONS (10)
  - Status epilepticus [None]
  - Inappropriate affect [None]
  - Confusional state [None]
  - Agitation [None]
  - Body temperature decreased [None]
  - Heart rate increased [None]
  - Blood pressure increased [None]
  - Blood urea increased [None]
  - Blood creatine increased [None]
  - Toxicity to various agents [None]
